FAERS Safety Report 9650717 (Version 1)
Quarter: 2013Q4

REPORT INFORMATION
  Report Type: Spontaneous
  Country: FR (occurrence: FR)
  Receive Date: 20131029
  Receipt Date: 20131029
  Transmission Date: 20140711
  Serious: Yes (Other)
  Sender: FDA-Public Use
  Company Number: FR-BRISTOL-MYERS SQUIBB COMPANY-19663772

PATIENT
  Age: 60 Year
  Sex: Male

DRUGS (4)
  1. ERBITUX SOLN FOR INF [Suspect]
     Indication: COLORECTAL CANCER METASTATIC
     Route: 042
     Dates: start: 20131015
  2. ATENOLOL [Concomitant]
     Dosage: 1DF=100 UNITS NOS
  3. LERCANIDIPINE [Concomitant]
     Dosage: 1DF=10 UNITS NOS
  4. SIMVASTATIN [Concomitant]
     Dosage: 1DF=20 UNITS NOS

REACTIONS (5)
  - Anaemia [Unknown]
  - Hypotension [Recovered/Resolved]
  - Paraesthesia [Recovered/Resolved]
  - Headache [Recovered/Resolved]
  - Rash [Recovered/Resolved]
